FAERS Safety Report 5292047-0 (Version None)
Quarter: 2007Q2

REPORT INFORMATION
  Report Type: 
  Country: None (occurrence: None)
  Receive Date: 20070406
  Receipt Date: 20070406
  Transmission Date: 20071010
  Serious: Yes (Other)
  Sender: FDA-Public Use
  Company Number: None

PATIENT
  Age: 54 Year
  Sex: Male
  Weight: 88.4514 kg

DRUGS (2)
  1. GLYBURIDE AND METFORMIN HCL [Suspect]
     Indication: DIABETES MELLITUS NON-INSULIN-DEPENDENT
     Dosage: ONE TABLET QD C EVENING MEAL
     Route: 048
     Dates: start: 20040830, end: 20040916
  2. GLYBURIDE AND METFORMIN HCL [Suspect]
     Indication: DIABETES MELLITUS NON-INSULIN-DEPENDENT
     Dosage: ONE TABLET QD C EVENING MEAL
     Route: 048
     Dates: start: 20070319, end: 20070320

REACTIONS (7)
  - ABDOMINAL DISCOMFORT [None]
  - DYSPEPSIA [None]
  - GASTROOESOPHAGEAL REFLUX DISEASE [None]
  - IMPAIRED WORK ABILITY [None]
  - PHARMACEUTICAL PRODUCT COMPLAINT [None]
  - SIMILAR REACTION ON PREVIOUS EXPOSURE TO DRUG [None]
  - THROAT TIGHTNESS [None]
